FAERS Safety Report 5154722-8 (Version None)
Quarter: 2006Q4

REPORT INFORMATION
  Report Type: 
  Country: None (occurrence: None)
  Receive Date: 20061116
  Receipt Date: 20061116
  Transmission Date: 20070319
  Serious: Yes (Disabling)
  Sender: FDA-Public Use
  Company Number: None

PATIENT
  Age: 42 Year
  Sex: Male
  Weight: 111.1313 kg

DRUGS (1)
  1. ZICAM NASAL GEL [Suspect]
     Indication: NASOPHARYNGITIS
     Dosage: 1 PUMP PER NOSTRIL 1 TIME USE NASAL
     Route: 045
     Dates: start: 20050701

REACTIONS (2)
  - AGEUSIA [None]
  - ANOSMIA [None]
